FAERS Safety Report 18952172 (Version 2)
Quarter: 2021Q1

REPORT INFORMATION
  Report Type: Spontaneous
  Country: US (occurrence: US)
  Receive Date: 20210301
  Receipt Date: 20210316
  Transmission Date: 20210420
  Serious: No
  Sender: FDA-Public Use
  Company Number: US-GRANULES-US-2021GRASPO00164

PATIENT
  Sex: Female

DRUGS (1)
  1. CLOTRIMAZOLE. [Suspect]
     Active Substance: CLOTRIMAZOLE
     Indication: EAR DISORDER
     Dosage: SUPPOSED TO TAKE TWICE DAILV
     Route: 061
     Dates: start: 20210204

REACTIONS (2)
  - Intentional dose omission [Unknown]
  - Liquid product physical issue [Unknown]

NARRATIVE: CASE EVENT DATE: 20210204
